FAERS Safety Report 7334343-9 (Version None)
Quarter: 2011Q1

REPORT INFORMATION
  Report Type: 
  Country: None (occurrence: None)
  Receive Date: 20110307
  Receipt Date: 20110228
  Transmission Date: 20110831
  Serious: Yes (Death, Hospitalization)
  Sender: FDA-Public Use
  Company Number: US-US-EMD SERONO, INC.-7042637

PATIENT
  Age: 55 Year
  Sex: Female

DRUGS (7)
  1. SANCTURA [Concomitant]
     Indication: NEUROGENIC BLADDER
     Route: 048
     Dates: end: 20101227
  2. DANTRIUM [Concomitant]
     Indication: URINARY TRACT INFECTION
     Route: 048
     Dates: end: 20101227
  3. MULTI-VITAMIN [Concomitant]
     Indication: PROPHYLAXIS
     Route: 048
     Dates: end: 20101027
  4. TYSABRI [Suspect]
     Indication: MULTIPLE SCLEROSIS
     Route: 042
     Dates: start: 20100204, end: 20101216
  5. ASPIRIN [Concomitant]
     Indication: CARDIOVASCULAR EVENT PROPHYLAXIS
     Dates: end: 20101227
  6. NOVANTRONE [Suspect]
     Indication: MULTIPLE SCLEROSIS
     Dates: start: 20060701, end: 20080717
  7. VITAMIN D [Concomitant]
     Indication: VITAMIN D DECREASED
     Route: 048

REACTIONS (8)
  - PULMONARY EMBOLISM [None]
  - LEFT VENTRICULAR DYSFUNCTION [None]
  - FATIGUE [None]
  - RIGHT ATRIAL DILATATION [None]
  - DEPRESSION [None]
  - CARDIOPULMONARY FAILURE [None]
  - INTRACARDIAC MASS [None]
  - MUSCLE SPASTICITY [None]
